FAERS Safety Report 25603165 (Version 1)
Quarter: 2025Q3

REPORT INFORMATION
  Report Type: Spontaneous
  Country: US (occurrence: US)
  Receive Date: 20250724
  Receipt Date: 20250724
  Transmission Date: 20251021
  Serious: Yes (Other)
  Sender: NOVARTIS
  Company Number: US-002147023-NVSC2025US116916

PATIENT
  Sex: Female

DRUGS (1)
  1. TASIGNA [Suspect]
     Active Substance: NILOTINIB
     Indication: Leukaemia
     Dosage: UNK, BID (200 MGX2)
     Route: 048
     Dates: start: 2010

REACTIONS (6)
  - Renal impairment [Unknown]
  - Dry skin [Unknown]
  - Nausea [Unknown]
  - Liver disorder [Unknown]
  - Adverse drug reaction [Unknown]
  - Fall [Unknown]
